FAERS Safety Report 17940786 (Version 1)
Quarter: 2020Q2

REPORT INFORMATION
  Report Type: Spontaneous
  Country: IT (occurrence: IT)
  Receive Date: 20200625
  Receipt Date: 20200625
  Transmission Date: 20200714
  Serious: Yes (Hospitalization, Other)
  Sender: FDA-Public Use
  Company Number: IT-SA-2020SA159519

PATIENT

DRUGS (5)
  1. TIROSINT [Concomitant]
     Active Substance: LEVOTHYROXINE SODIUM
  2. CLEXANE [Suspect]
     Active Substance: ENOXAPARIN SODIUM
     Indication: CARDIAC FIBRILLATION
     Dosage: 4000 KIU, QD
     Route: 058
     Dates: start: 20200117, end: 20200428
  3. BISOPROLOLO TEVA [Concomitant]
     Active Substance: BISOPROLOL FUMARATE
  4. PLAUNAZIDE [Concomitant]
     Active Substance: HYDROCHLOROTHIAZIDE\OLMESARTAN MEDOXOMIL
  5. PANTOPRAZOLO AUROBINDO [Concomitant]
     Active Substance: PANTOPRAZOLE SODIUM

REACTIONS (5)
  - Haematemesis [Recovering/Resolving]
  - Intra-abdominal haematoma [Recovering/Resolving]
  - Anaemia [Recovering/Resolving]
  - Hypotension [Recovering/Resolving]
  - Presyncope [Recovering/Resolving]

NARRATIVE: CASE EVENT DATE: 20200429
